FAERS Safety Report 17745229 (Version 1)
Quarter: 2020Q2

REPORT INFORMATION
  Report Type: Spontaneous
  Country: IT (occurrence: IT)
  Receive Date: 20200505
  Receipt Date: 20200505
  Transmission Date: 20200714
  Serious: Yes (Death)
  Sender: FDA-Public Use
  Company Number: IT-NVP-000032

PATIENT
  Age: 66 Year

DRUGS (1)
  1. SILDENAFIL. [Suspect]
     Active Substance: SILDENAFIL
     Indication: PRODUCT USED FOR UNKNOWN INDICATION
     Dosage: 50-100 MG ORAL DOSE OF SILDENAFIL 30-60 MIN BEFORE SEX
     Route: 048

REACTIONS (2)
  - Drug abuse [Fatal]
  - Cardiac tamponade [Fatal]
